FAERS Safety Report 11132316 (Version 1)
Quarter: 2015Q2

REPORT INFORMATION
  Report Type: Spontaneous
  Country: JP (occurrence: JP)
  Receive Date: 20150522
  Receipt Date: 20150522
  Transmission Date: 20150821
  Serious: Yes (Hospitalization)
  Sender: FDA-Public Use
  Company Number: JP-ACTAVIS-2015-09998

PATIENT
  Age: 35 Year
  Sex: Male
  Weight: 80 kg

DRUGS (2)
  1. FINASTERIDE (UNKNOWN) [Suspect]
     Active Substance: FINASTERIDE
     Indication: ANDROGENETIC ALOPECIA
     Dosage: 1 MG, DAILY
     Route: 065
     Dates: start: 201106
  2. FINASTERIDE (UNKNOWN) [Suspect]
     Active Substance: FINASTERIDE
     Indication: PROPHYLAXIS

REACTIONS (1)
  - Intracranial venous sinus thrombosis [Recovered/Resolved]

NARRATIVE: CASE EVENT DATE: 201112
